FAERS Safety Report 18272280 (Version 4)
Quarter: 2020Q4

REPORT INFORMATION
  Report Type: Spontaneous
  Country: DE (occurrence: DE)
  Receive Date: 20200916
  Receipt Date: 20201218
  Transmission Date: 20210113
  Serious: Yes (Hospitalization, Other)
  Sender: FDA-Public Use
  Company Number: DE-ACCORD-201063

PATIENT
  Age: 18 Year
  Sex: Male
  Weight: 75 kg

DRUGS (5)
  1. DOXORUBICIN [Concomitant]
     Active Substance: DOXORUBICIN
     Indication: OSTEOSARCOMA
     Dosage: MAP
  2. METHOTREXATE. [Suspect]
     Active Substance: METHOTREXATE
     Indication: OSTEOSARCOMA
     Dosage: HIGH-DOSE METHOTREXATE, IN WEEK 4 AND 5, TOTAL 12 INFUSIONS OVER 4 HOURS
     Route: 042
  3. PIPERACILLIN/TAZOBACTAM [Interacting]
     Active Substance: PIPERACILLIN SODIUM\TAZOBACTAM SODIUM
     Indication: URINARY TRACT INFECTION
     Dosage: PIPERACILLIN-TAZOBACTAM 4.5 G DOSE
     Route: 042
  4. FOLINIC ACID [Concomitant]
     Active Substance: LEUCOVORIN
     Indication: OSTEOSARCOMA
     Dosage: INTENSIFIED CF RESCUE THERAPY (300 MG/M2 BSA EVERY 6 HOURS FOR TWO DAYS)
  5. CISPLATIN. [Concomitant]
     Active Substance: CISPLATIN
     Indication: OSTEOSARCOMA
     Dosage: MAP

REACTIONS (8)
  - Neurotoxicity [Recovered/Resolved]
  - Paraparesis [Recovered/Resolved]
  - Renal failure [Recovered/Resolved]
  - Drug level decreased [Recovering/Resolving]
  - Muscular weakness [Recovered/Resolved]
  - Paraesthesia [Recovered/Resolved]
  - Drug interaction [Unknown]
  - Myelopathy [Recovered/Resolved]
